FAERS Safety Report 8158591-3 (Version None)
Quarter: 2012Q1

REPORT INFORMATION
  Report Type: 
  Country: None (occurrence: None)
  Receive Date: 20120217
  Receipt Date: 20120201
  Transmission Date: 20120608
  Serious: No
  Sender: FDA-Public Use
  Company Number: MSER20120006

PATIENT
  Sex: Female

DRUGS (1)
  1. MORPHINE SUL TAB [Suspect]
     Indication: PAIN
     Dosage: ORAL
     Route: 048

REACTIONS (3)
  - HEADACHE [None]
  - DRUG INEFFECTIVE [None]
  - CHEST PAIN [None]
